FAERS Safety Report 22622129 (Version 1)
Quarter: 2023Q2

REPORT INFORMATION
  Report Type: Spontaneous
  Country: US (occurrence: US)
  Receive Date: 20230620
  Receipt Date: 20230620
  Transmission Date: 20230721
  Serious: No
  Sender: FDA-Public Use
  Company Number: US-MIRATI-MT2023PM04189

PATIENT

DRUGS (1)
  1. KRAZATI [Suspect]
     Active Substance: ADAGRASIB
     Indication: Product used for unknown indication

REACTIONS (3)
  - Fatigue [Unknown]
  - Decreased appetite [Unknown]
  - Blood creatinine increased [Unknown]
